FAERS Safety Report 22398209 (Version 1)
Quarter: 2023Q2

REPORT INFORMATION
  Report Type: Report from Study
  Country: US (occurrence: US)
  Receive Date: 20230602
  Receipt Date: 20230602
  Transmission Date: 20230722
  Serious: Yes (Other)
  Sender: FDA-Public Use
  Company Number: US-ABBVIE-5186706

PATIENT
  Age: 69 Year
  Sex: Male

DRUGS (2)
  1. SKYRIZI [Suspect]
     Active Substance: RISANKIZUMAB-RZAA
     Indication: Crohn^s disease
     Route: 058
     Dates: start: 20230107
  2. VITAMIN B12 [Suspect]
     Active Substance: CYANOCOBALAMIN
     Indication: Product used for unknown indication
     Route: 065

REACTIONS (14)
  - Cerebrovascular accident [Unknown]
  - Muscle spasms [Recovering/Resolving]
  - Injection site bruising [Unknown]
  - Crohn^s disease [Unknown]
  - Flatulence [Unknown]
  - Brain injury [Unknown]
  - Visual impairment [Unknown]
  - Lethargy [Unknown]
  - Hypoaesthesia [Unknown]
  - Dizziness [Unknown]
  - Asthenia [Unknown]
  - Incorrect dose administered [Unknown]
  - Drug ineffective [Unknown]
  - Device issue [Unknown]

NARRATIVE: CASE EVENT DATE: 20230521
